FAERS Safety Report 5325851-0 (Version None)
Quarter: 2007Q2

REPORT INFORMATION
  Report Type: 
  Country: None (occurrence: None)
  Receive Date: 20070510
  Receipt Date: 20070427
  Transmission Date: 20071010
  Serious: Yes (Life-Threatening, Other)
  Sender: FDA-Public Use
  Company Number: 2007EU000779

PATIENT
  Age: 40 Year
  Sex: Female

DRUGS (14)
  1. TACROLIMUS [Suspect]
     Indication: LIVER TRANSPLANT
     Dosage: 3 MG, UID/QD; ORAL
     Route: 048
     Dates: start: 20051118, end: 20061116
  2. MYCOPHENOLATE MOFETIL [Suspect]
     Indication: LIVER TRANSPLANT
     Dosage: 1000 MG, UID/QD, IV NOS
     Route: 042
     Dates: start: 20051117, end: 20051117
  3. MYCOPHENOLATE MOFETIL [Suspect]
     Indication: LIVER TRANSPLANT
     Dosage: 1000 MG, UID/QD, IV NOS
     Route: 042
     Dates: start: 20051118, end: 20061116
  4. MYCOPHENOLATE MOFETIL [Suspect]
     Indication: LIVER TRANSPLANT
     Dosage: 20 MG, , IUD/QD, 1000 MG; IUD/QD;ORAL
     Route: 048
     Dates: start: 20051117, end: 20051129
  5. PREDNISOLONE [Suspect]
     Indication: LIVER TRANSPLANT
     Dosage: 5 MG, IUD/QD,
     Dates: start: 20051130, end: 20060817
  6. TAZOCILLINE (PIPERACILLIN SODIUM, TAZOBACTAM SODIUM) [Concomitant]
  7. AMPHOTERICIN B [Concomitant]
  8. COLISTIN (COLISTIN) [Concomitant]
  9. GANCICLOVIR [Concomitant]
  10. MORPHINE [Concomitant]
  11. ULTIVA [Concomitant]
  12. DIPRIVAN [Concomitant]
  13. ACUPAN [Concomitant]
  14. FLUIMUCIL [Concomitant]

REACTIONS (3)
  - HAEMOGLOBIN DECREASED [None]
  - PERITONEAL HAEMORRHAGE [None]
  - SEPSIS [None]
